FAERS Safety Report 15258304 (Version 1)
Quarter: 2018Q3

REPORT INFORMATION
  Report Type: Other
  Country: RU (occurrence: RU)
  Receive Date: 20180809
  Receipt Date: 20180809
  Transmission Date: 20181010
  Serious: Yes (Other)
  Sender: FDA-Public Use
  Company Number: RU-LUPIN PHARMACEUTICALS INC.-2018-03674

PATIENT
  Age: 27 Year
  Sex: Male
  Weight: 67 kg

DRUGS (2)
  1. COMBUTOL [Suspect]
     Active Substance: ETHAMBUTOL HYDROCHLORIDE
     Indication: PULMONARY TUBERCULOSIS
     Dosage: UNSPECIFIED MG, QD
     Route: 048
     Dates: start: 20140424, end: 20140507
  2. PYZINA [Suspect]
     Active Substance: PYRAZINAMIDE
     Indication: PULMONARY TUBERCULOSIS
     Dosage: UNSPECIFIED MG, QD
     Route: 048
     Dates: start: 20140424, end: 20140507

REACTIONS (1)
  - Liver injury [Recovered/Resolved]

NARRATIVE: CASE EVENT DATE: 20140507
